FAERS Safety Report 10206753 (Version 1)
Quarter: 2014Q2

REPORT INFORMATION
  Report Type: Spontaneous
  Country: US (occurrence: None)
  Receive Date: 20140527
  Receipt Date: 20140527
  Transmission Date: 20141212
  Serious: Yes (Other)
  Sender: FDA-Public Use
  Company Number: None

PATIENT
  Age: 42 Year
  Sex: Female
  Weight: 61.24 kg

DRUGS (1)
  1. AMOXICILLIN CLAVULANATE POTASSIUM 125 DR. REDDY^S LAB [Suspect]
     Indication: SINUSITIS
     Route: 048
     Dates: start: 20140514, end: 20140522

REACTIONS (6)
  - Vomiting [None]
  - Dehydration [None]
  - Rash [None]
  - Rash [None]
  - Product quality issue [None]
  - Drug ineffective [None]
